FAERS Safety Report 8797544 (Version 5)
Quarter: 2013Q1

REPORT INFORMATION
  Report Type: Report from Study
  Country: FR (occurrence: FR)
  Receive Date: 20120920
  Receipt Date: 20130124
  Transmission Date: 20140127
  Serious: Yes (Hospitalization)
  Sender: FDA-Public Use
  Company Number: PHHO2012FR013588

PATIENT
  Age: 66 Year
  Sex: Female
  Weight: 62 kg

DRUGS (11)
  1. AFINITOR [Suspect]
     Indication: NEOPLASM MALIGNANT
     Dosage: 10 MG, QD
     Dates: start: 20120830, end: 20120917
  2. AFINITOR [Suspect]
     Dosage: 10 MG, QD
     Dates: start: 20121004
  3. AXITINIB [Suspect]
     Indication: NEOPLASM MALIGNANT
     Dosage: 10 MG, BID
     Dates: start: 20120821, end: 20120917
  4. ESIDREX [Concomitant]
     Dosage: UNK
  5. BISOPROLOL [Concomitant]
     Dosage: UNK
  6. TEMESTA [Concomitant]
     Dosage: UNK
  7. LEVOTHYROX [Concomitant]
  8. AVASTIN [Concomitant]
  9. LORAZEPAM [Concomitant]
     Dosage: UNK
  10. FLUOXETINE [Concomitant]
     Dosage: UNK
  11. RAMIPRIL [Concomitant]
     Indication: HYPERTENSION
     Dosage: UNK

REACTIONS (5)
  - Osteonecrosis of jaw [Recovering/Resolving]
  - Asthenia [Recovered/Resolved]
  - Renal failure [Recovered/Resolved]
  - Hypokalaemia [Recovered/Resolved]
  - Abnormal loss of weight [Recovered/Resolved]
